FAERS Safety Report 5385400-8 (Version None)
Quarter: 2007Q3

REPORT INFORMATION
  Report Type: 
  Country: None (occurrence: None)
  Receive Date: 20070709
  Receipt Date: 20070625
  Transmission Date: 20080115
  Serious: Yes (Hospitalization, Disabling)
  Sender: FDA-Public Use
  Company Number: 2007-190497-NL

PATIENT
  Age: 31 Year
  Sex: Female

DRUGS (2)
  1. ETONOGESTREL [Suspect]
     Dosage: DF
     Dates: start: 20020419, end: 20050415
  2. ETONOGESTREL [Suspect]
     Dosage: DF
     Dates: start: 20050415, end: 20070119

REACTIONS (1)
  - BREAST CANCER FEMALE [None]
